FAERS Safety Report 11785449 (Version 2)
Quarter: 2016Q4

REPORT INFORMATION
  Report Type: Spontaneous
  Country: US (occurrence: US)
  Receive Date: 20151130
  Receipt Date: 20161028
  Transmission Date: 20170206
  Serious: Yes (Other)
  Sender: FDA-Public Use
  Company Number: US-BAYER-2015-399184

PATIENT
  Sex: Female

DRUGS (1)
  1. MIRENA [Suspect]
     Active Substance: LEVONORGESTREL
     Dosage: 20 MCG/24HR, CONT
     Route: 015

REACTIONS (9)
  - Abdominal pain [Unknown]
  - Loss of libido [Not Recovered/Not Resolved]
  - Pelvic pain [Unknown]
  - Depression [Not Recovered/Not Resolved]
  - Genital haemorrhage [Recovered/Resolved]
  - Abdominal distension [Unknown]
  - Abdominal pain upper [Unknown]
  - Weight increased [Unknown]
  - Menorrhagia [Unknown]
